FAERS Safety Report 5420104-4 (Version None)
Quarter: 2007Q3

REPORT INFORMATION
  Report Type: 
  Country: None (occurrence: None)
  Receive Date: 20070820
  Receipt Date: 20070813
  Transmission Date: 20080115
  Serious: Yes (Other)
  Sender: FDA-Public Use
  Company Number: US-SHR-US-2007-023923

PATIENT
  Age: 66 Year
  Sex: Female
  Weight: 91 kg

DRUGS (1)
  1. CLIMARA PRO [Suspect]
     Dosage: 0.045 / 0.015 MG/D, CONT
     Route: 062
     Dates: start: 20040501

REACTIONS (7)
  - ANKLE FRACTURE [None]
  - FALL [None]
  - NEUROPATHY [None]
  - PAIN IN EXTREMITY [None]
  - PHARMACEUTICAL PRODUCT COMPLAINT [None]
  - RASH [None]
  - RESTLESS LEGS SYNDROME [None]
